FAERS Safety Report 8085169-2 (Version None)
Quarter: 2012Q1

REPORT INFORMATION
  Report Type: 
  Country: None (occurrence: None)
  Receive Date: 20120128
  Receipt Date: 20110328
  Transmission Date: 20120608
  Serious: No
  Sender: FDA-Public Use
  Company Number: US-ABBOTT-11P-163-0714913-00

PATIENT
  Age: 45 Year
  Sex: Male

DRUGS (5)
  1. WELLBUTRIN [Concomitant]
     Indication: ANXIETY
     Dosage: DAILY
     Route: 048
  2. FISH OIL [Concomitant]
     Indication: PRODUCT USED FOR UNKNOWN INDICATION
     Dosage: DAILY
     Route: 048
  3. UNKNOWN MEDICATION [Concomitant]
     Indication: BLOOD TRIGLYCERIDES INCREASED
  4. UNKNOWN MEDICATION WITH LIPIDS [Concomitant]
     Indication: PRODUCT USED FOR UNKNOWN INDICATION
  5. HUMIRA [Suspect]
     Indication: PSORIASIS
     Dates: start: 20110323

REACTIONS (3)
  - ABDOMINAL PAIN [None]
  - HEADACHE [None]
  - DIARRHOEA [None]
